FAERS Safety Report 18612384 (Version 13)
Quarter: 2024Q1

REPORT INFORMATION
  Report Type: Spontaneous
  Country: US (occurrence: US)
  Receive Date: 20201214
  Receipt Date: 20240328
  Transmission Date: 20240410
  Serious: Yes (Hospitalization)
  Sender: FDA-Public Use
  Company Number: US-PFIZER INC-2020324326

PATIENT
  Age: 72 Year
  Sex: Male

DRUGS (4)
  1. BRAFTOVI [Suspect]
     Active Substance: ENCORAFENIB
     Indication: Metastatic neoplasm
     Dosage: 450 MG DAILY
     Route: 048
  2. BRAFTOVI [Suspect]
     Active Substance: ENCORAFENIB
     Dosage: 45 MG, DAILY
  3. MEKTOVI [Suspect]
     Active Substance: BINIMETINIB
     Indication: Metastatic neoplasm
     Dosage: 45 MG, 2X/DAY (EVERY 12 HOURS; 45 MG BID (TWICE A DAY))
     Route: 048
  4. MEKTOVI [Suspect]
     Active Substance: BINIMETINIB
     Dosage: UNK
     Dates: start: 20200820

REACTIONS (3)
  - Malaise [Unknown]
  - Wrong product administered [Unknown]
  - Extra dose administered [Unknown]

NARRATIVE: CASE EVENT DATE: 20200820
